FAERS Safety Report 7315189-4 (Version None)
Quarter: 2011Q1

REPORT INFORMATION
  Report Type: 
  Country: None (occurrence: None)
  Receive Date: 20110225
  Receipt Date: 20110216
  Transmission Date: 20110831
  Serious: Yes (Other)
  Sender: FDA-Public Use
  Company Number: GB-JNJFOC-20110201022

PATIENT
  Sex: Male

DRUGS (1)
  1. HALDOL [Suspect]
     Indication: SCHIZOPHRENIA
     Route: 030

REACTIONS (9)
  - THINKING ABNORMAL [None]
  - AGGRESSION [None]
  - DIZZINESS [None]
  - ABDOMINAL DISTENSION [None]
  - CONFUSIONAL STATE [None]
  - INSOMNIA [None]
  - HEADACHE [None]
  - PARANOIA [None]
  - DRY MOUTH [None]
